FAERS Safety Report 14995085 (Version 5)
Quarter: 2018Q3

REPORT INFORMATION
  Report Type: Report from Study
  Country: DK (occurrence: DK)
  Receive Date: 20180611
  Receipt Date: 20180921
  Transmission Date: 20181010
  Serious: Yes (Other)
  Sender: FDA-Public Use
  Company Number: DK-BAUSCH-BL-2018-016396

PATIENT
  Age: 73 Year
  Sex: Male

DRUGS (25)
  1. DEXAMETHASONE. [Suspect]
     Active Substance: DEXAMETHASONE
     Dosage: 120 MILLIGRAM
     Route: 048
     Dates: start: 20180412, end: 20180422
  2. VELCADE [Suspect]
     Active Substance: BORTEZOMIB
     Indication: PLASMA CELL MYELOMA
     Dosage: 7.8 MILLIGRAM/SQ. METER
     Route: 058
     Dates: start: 20180305, end: 20180314
  3. VELCADE [Suspect]
     Active Substance: BORTEZOMIB
     Dosage: 9.2 MILLIGRAM/SQ. METER; 18.4 MILIGRAM/SQ. METER WEEKLY
     Route: 058
     Dates: start: 20180529, end: 20180607
  4. REVLIMID [Suspect]
     Active Substance: LENALIDOMIDE
     Route: 048
     Dates: start: 20180326, end: 20180407
  5. DEXAMETHASONE. [Suspect]
     Active Substance: DEXAMETHASONE
     Route: 048
     Dates: start: 20180326, end: 20180407
  6. DEXAMETHASONE. [Suspect]
     Active Substance: DEXAMETHASONE
     Dosage: (91.4286 MILLIGRAM); IN ONE WEEK
     Route: 048
     Dates: start: 20180508, end: 20180519
  7. VELCADE [Suspect]
     Active Substance: BORTEZOMIB
     Route: 058
     Dates: start: 20180508
  8. REVLIMID [Suspect]
     Active Substance: LENALIDOMIDE
     Dosage: 85.7143 MILLIGRAM; 600 MG IN ONE WEEK
     Route: 048
     Dates: start: 20180412, end: 20180422
  9. REVLIMID [Suspect]
     Active Substance: LENALIDOMIDE
     Dosage: (102.8571 MILLIGRAM), 720 MG WEEKLY
     Route: 048
     Dates: start: 20180508, end: 20180519
  10. VELCADE [Suspect]
     Active Substance: BORTEZOMIB
     Dosage: 2.5 MILLIGRAM/SQ. METER
     Route: 058
     Dates: start: 20180326, end: 20180328
  11. REVLIMID [Suspect]
     Active Substance: LENALIDOMIDE
     Route: 048
     Dates: start: 20180326, end: 20180328
  12. REVLIMID [Suspect]
     Active Substance: LENALIDOMIDE
     Dosage: 50 MILLIGRAM
     Route: 048
     Dates: start: 20180330, end: 20180407
  13. DEXAMETHASONE. [Suspect]
     Active Substance: DEXAMETHASONE
     Indication: PLASMA CELL MYELOMA
     Route: 048
     Dates: start: 20180305, end: 20180314
  14. DEXAMETHASONE. [Suspect]
     Active Substance: DEXAMETHASONE
     Dosage: 40 MILLIGRAM; 160 MG IN ONE WEEK
     Route: 048
     Dates: start: 20180326, end: 20180328
  15. DEXAMETHASONE. [Suspect]
     Active Substance: DEXAMETHASONE
     Dosage: 160 MILLIGRAM
     Route: 048
     Dates: start: 20180529, end: 20180607
  16. REVLIMID [Suspect]
     Active Substance: LENALIDOMIDE
     Indication: PLASMA CELL MYELOMA
     Route: 048
     Dates: start: 20180305, end: 20180314
  17. REVLIMID [Suspect]
     Active Substance: LENALIDOMIDE
     Route: 048
     Dates: start: 20180529, end: 20180607
  18. VELCADE [Suspect]
     Active Substance: BORTEZOMIB
     Dosage: 10 MILLIGRAM;
     Route: 058
     Dates: start: 20180326, end: 20180407
  19. DEXAMETHASONE. [Suspect]
     Active Substance: DEXAMETHASONE
     Dosage: 120 MILLIGRAM
     Route: 048
     Dates: start: 20180330, end: 20180407
  20. DEXAMETHASONE. [Suspect]
     Active Substance: DEXAMETHASONE
     Route: 048
     Dates: start: 20180316, end: 20180325
  21. VELCADE [Suspect]
     Active Substance: BORTEZOMIB
     Dosage: 7.5 MILLIGRAM/SQ. METER
     Route: 058
     Dates: start: 20180330, end: 20180407
  22. VELCADE [Suspect]
     Active Substance: BORTEZOMIB
     Dosage: 9.2 MILLIGRAM/SQ. METER; 18.4 MILIGRAM/SQ. METER WEEKLY
     Route: 058
     Dates: start: 20180508, end: 20180519
  23. VELCADE [Suspect]
     Active Substance: BORTEZOMIB
     Route: 058
     Dates: start: 20180316, end: 20180325
  24. VELCADE [Suspect]
     Active Substance: BORTEZOMIB
     Dosage: 7.8 MILLIGRAM/SQ. METER
     Route: 058
     Dates: start: 20180412, end: 20180422
  25. REVLIMID [Suspect]
     Active Substance: LENALIDOMIDE
     Dosage: 100 MILLIGRAM; 600 MG WEEKLY
     Route: 048
     Dates: start: 20180508

REACTIONS (2)
  - Fatigue [Recovered/Resolved]
  - Dyspnoea [Recovered/Resolved]

NARRATIVE: CASE EVENT DATE: 20180503
